FAERS Safety Report 24847183 (Version 2)
Quarter: 2025Q1

REPORT INFORMATION
  Report Type: Spontaneous
  Country: US (occurrence: US)
  Receive Date: 20250116
  Receipt Date: 20250127
  Transmission Date: 20250409
  Serious: Yes (Hospitalization, Other)
  Sender: AUROBINDO
  Company Number: US-MLMSERVICE-20241226-PI325968-00232-1

PATIENT
  Age: 62 Year
  Sex: Female

DRUGS (2)
  1. MYCOPHENOLIC ACID [Suspect]
     Active Substance: MYCOPHENOLIC ACID
     Indication: Autoimmune hepatitis
     Dosage: 1000 MILLIGRAM, TWO TIMES A DAY
     Route: 065
  2. BUDESONIDE [Suspect]
     Active Substance: BUDESONIDE
     Indication: Autoimmune hepatitis
     Dosage: 6 MILLIGRAM, ONCE A DAY
     Route: 048

REACTIONS (3)
  - Cytomegalovirus gastritis [Recovered/Resolved]
  - Cytomegalovirus duodenitis [Recovered/Resolved]
  - Cytomegalovirus colitis [Recovered/Resolved]
